FAERS Safety Report 15981525 (Version 1)
Quarter: 2019Q1

REPORT INFORMATION
  Report Type: Spontaneous
  Country: US (occurrence: US)
  Receive Date: 20190219
  Receipt Date: 20190219
  Transmission Date: 20190418
  Serious: Yes (Hospitalization, Other)
  Sender: FDA-Public Use
  Company Number: US-ASTRAZENECA-2019SE27886

PATIENT
  Age: 23476 Day
  Sex: Female

DRUGS (11)
  1. MOVANTIK [Suspect]
     Active Substance: NALOXEGOL OXALATE
     Indication: CONSTIPATION
     Route: 048
  2. TYLENOL EXTRA STRENGTH [Concomitant]
     Active Substance: ACETAMINOPHEN
     Indication: PAIN
     Dosage: 500.0MG AS REQUIRED
     Route: 048
  3. VITAMIN D3 [Concomitant]
     Active Substance: CHOLECALCIFEROL
     Dosage: 20000.0USP UNITS UNKNOWN
     Route: 048
  4. POLYETHYLENE GLYCOL [Concomitant]
     Active Substance: POLYETHYLENE GLYCOLS
     Dosage: 3350 POWDER
  5. FENTANYL. [Concomitant]
     Active Substance: FENTANYL
     Dosage: HALF THE TABLET EACH DOSE
  6. KLONOPIN [Concomitant]
     Active Substance: CLONAZEPAM
     Indication: ANXIETY
     Route: 048
  7. ALIVE WOMENS MULTIVITAMIN [Concomitant]
     Route: 048
  8. CELECOXIB- CELEBREX [Concomitant]
     Indication: INFLAMMATION
     Route: 048
  9. TIZANIDINE. [Concomitant]
     Active Substance: TIZANIDINE
     Indication: MUSCLE SPASMS
     Route: 048
  10. LYRICA [Concomitant]
     Active Substance: PREGABALIN
     Indication: FIBROMYALGIA
     Route: 048
  11. FISH OIL [Concomitant]
     Active Substance: FISH OIL
     Dosage: DAILY
     Route: 048

REACTIONS (14)
  - Faecaloma [Unknown]
  - Product quality issue [Unknown]
  - Constipation [Recovering/Resolving]
  - Spinal disorder [Unknown]
  - Gastrointestinal pain [Recovered/Resolved]
  - Product dose omission [Recovered/Resolved]
  - Carpal tunnel syndrome [Unknown]
  - Respiratory arrest [Recovering/Resolving]
  - Malaise [Recovered/Resolved]
  - Abdominal discomfort [Unknown]
  - Intentional product misuse [Recovered/Resolved]
  - Tinnitus [Unknown]
  - Haemorrhage [Unknown]
  - Arthropathy [Unknown]

NARRATIVE: CASE EVENT DATE: 20190205
